FAERS Safety Report 6085459-9 (Version None)
Quarter: 2009Q1

REPORT INFORMATION
  Report Type: 
  Country: None (occurrence: None)
  Receive Date: 20090220
  Receipt Date: 20090213
  Transmission Date: 20090719
  Serious: No
  Sender: FDA-Public Use
  Company Number: US-JNJFOC-20090203777

PATIENT
  Sex: Female
  Weight: 83.92 kg

DRUGS (4)
  1. FENTANYL TRANSDERMAL SYSTEM [Suspect]
     Indication: BACK PAIN
     Route: 062
  2. HUMULIN R [Concomitant]
     Indication: TYPE 1 DIABETES MELLITUS
     Dosage: 25 U 100U/ML. 25U IN MORNING AND EVENING
     Route: 058
  3. GLUCOPHAGE [Concomitant]
     Indication: TYPE 1 DIABETES MELLITUS
     Dosage: 1000 TABLET/500 MG 2 TABLETS IN MORNING AND EVENING
     Route: 048
  4. NORCO [Concomitant]
     Indication: BREAKTHROUGH PAIN
     Dosage: 10MG-325 MG 1 IN THE MORNING + 1 IN EVENING AS NEEDED
     Route: 048

REACTIONS (1)
  - WRONG TECHNIQUE IN DRUG USAGE PROCESS [None]
